FAERS Safety Report 25613336 (Version 1)
Quarter: 2025Q3

REPORT INFORMATION
  Report Type: Spontaneous
  Country: KR (occurrence: KR)
  Receive Date: 20250728
  Receipt Date: 20250728
  Transmission Date: 20251021
  Serious: Yes (Death, Other)
  Sender: AMGEN
  Company Number: KR-AMGEN-KORSP2025143877

PATIENT

DRUGS (4)
  1. ROMIPLOSTIM [Suspect]
     Active Substance: ROMIPLOSTIM
     Indication: Aplastic anaemia
     Dosage: 10 MICROGRAM/KILOGRAM, QWK (FROM DAY 1 TO WEEK 4)
     Route: 058
  2. ROMIPLOSTIM [Suspect]
     Active Substance: ROMIPLOSTIM
     Dosage: UNK, QWK, (5 WEEK ONWARDS, DOSE ADJUSTED BETWEEN 0 AND 20 UG/KG)
     Route: 058
  3. ROMIPLOSTIM [Suspect]
     Active Substance: ROMIPLOSTIM
     Dosage: UNK, Q2WK
     Route: 058
  4. CYCLOSPORINE [Suspect]
     Active Substance: CYCLOSPORINE
     Indication: Aplastic anaemia
     Dosage: UNK (5 OR 6) MILLIGRAM/KILOGRAM, QD
     Route: 065

REACTIONS (24)
  - Death [Fatal]
  - Pneumonia [Fatal]
  - Pneumonia fungal [Fatal]
  - Febrile neutropenia [Unknown]
  - Myelodysplastic syndrome [Unknown]
  - Nausea [Unknown]
  - Liver function test abnormal [Unknown]
  - Coagulation test abnormal [Unknown]
  - Adverse event [Unknown]
  - Drug ineffective [Unknown]
  - Headache [Unknown]
  - Dyspepsia [Unknown]
  - Abdominal pain [Unknown]
  - Hypomagnesaemia [Unknown]
  - Arthralgia [Unknown]
  - Constipation [Unknown]
  - Diarrhoea [Unknown]
  - Gastrointestinal disorder [Unknown]
  - Metabolic disorder [Unknown]
  - Malnutrition [Unknown]
  - Musculoskeletal disorder [Unknown]
  - Connective tissue disorder [Unknown]
  - Nervous system disorder [Unknown]
  - Chromosome analysis abnormal [Unknown]
